FAERS Safety Report 9200943 (Version 1)
Quarter: 2013Q2

REPORT INFORMATION
  Report Type: Report from Study
  Country: CA (occurrence: CA)
  Receive Date: 20130401
  Receipt Date: 20130401
  Transmission Date: 20140414
  Serious: Yes (Other)
  Sender: FDA-Public Use
  Company Number: CA-JNJFOC-20130115810

PATIENT
  Age: 81 Year
  Sex: Male
  Weight: 71.2 kg

DRUGS (11)
  1. PREDNISONE [Concomitant]
     Indication: RHEUMATOID ARTHRITIS
     Route: 048
  2. DIDROCAL [Concomitant]
     Indication: OSTEOPOROSIS
     Route: 065
  3. TYLENOL 3 [Concomitant]
     Route: 065
  4. FLOMAX [Concomitant]
     Route: 065
  5. RAMIPRIL [Concomitant]
     Indication: HYPERTENSION
     Route: 065
  6. RANITIDINE [Concomitant]
     Route: 065
  7. REMICADE [Suspect]
     Indication: RHEUMATOID ARTHRITIS
     Route: 042
     Dates: start: 20130321
  8. REMICADE [Suspect]
     Indication: RHEUMATOID ARTHRITIS
     Route: 042
     Dates: start: 20130124
  9. REMICADE [Suspect]
     Indication: RHEUMATOID ARTHRITIS
     Route: 042
     Dates: start: 20090924
  10. REMICADE [Suspect]
     Indication: RHEUMATOID ARTHRITIS
     Route: 042
     Dates: start: 20090824
  11. METHOTREXATE [Concomitant]
     Indication: RHEUMATOID ARTHRITIS
     Route: 048

REACTIONS (3)
  - Visual impairment [Not Recovered/Not Resolved]
  - Fungal infection [Recovering/Resolving]
  - Lacrimation increased [Not Recovered/Not Resolved]
